FAERS Safety Report 8680839 (Version 3)
Quarter: 2012Q4

REPORT INFORMATION
  Report Type: 
  Country: US (occurrence: US)
  Receive Date: 20120724
  Receipt Date: 20120906
  Transmission Date: 20130627
  Serious: No
  Sender: FDA-Public Use
  Company Number: US-ASTRAZENECA-2012SE06044

PATIENT
  Age: 72 Year
  Sex: Female
  Weight: 81.6 kg

DRUGS (4)
  1. NEXIUM [Suspect]
     Indication: GASTROINTESTINAL HYPOMOTILITY
     Route: 048
  2. PRILOSEC [Suspect]
     Route: 048
  3. PRILOSEC [Suspect]
     Dosage: GENERIC
     Route: 048
  4. PRILOSEC OTC [Suspect]
     Route: 048

REACTIONS (8)
  - Abdominal discomfort [Unknown]
  - Oedema peripheral [Unknown]
  - Oedema peripheral [Unknown]
  - Gastric disorder [Unknown]
  - Functional gastrointestinal disorder [Unknown]
  - Drug dose omission [Unknown]
  - Off label use [Unknown]
  - Drug ineffective [Unknown]
